FAERS Safety Report 9565977 (Version 1)
Quarter: 2013Q3

REPORT INFORMATION
  Report Type: Spontaneous
  Country: US (occurrence: US)
  Receive Date: 20130930
  Receipt Date: 20130930
  Transmission Date: 20140515
  Serious: Yes (Other)
  Sender: FDA-Public Use
  Company Number: US-ROCHE-1281169

PATIENT
  Sex: Female

DRUGS (8)
  1. XOLAIR [Suspect]
     Indication: PRODUCT USED FOR UNKNOWN INDICATION
     Route: 065
  2. ASPRIN-EC [Concomitant]
     Route: 065
  3. B COMPLEX [Concomitant]
     Route: 065
  4. BUTALBITAL [Concomitant]
     Dosage: 50/325/40/30
     Route: 065
  5. POTASSIUM CHLORIDE [Concomitant]
     Route: 065
  6. ZANTAC [Concomitant]
     Route: 065
  7. TOPIRAMATE [Concomitant]
     Route: 065
  8. ZETIA [Concomitant]
     Route: 065

REACTIONS (9)
  - Feeling abnormal [Unknown]
  - Hyperhidrosis [Unknown]
  - Nausea [Unknown]
  - Dysphagia [Unknown]
  - Headache [Unknown]
  - Heart rate irregular [Unknown]
  - Cardiac disorder [Unknown]
  - Blood pressure decreased [Unknown]
  - Muscle disorder [Unknown]
